FAERS Safety Report 9148701 (Version 1)
Quarter: 2013Q1

REPORT INFORMATION
  Report Type: Spontaneous
  Country: GB (occurrence: GB)
  Receive Date: 20130308
  Receipt Date: 20130308
  Transmission Date: 20140127
  Serious: Yes (Hospitalization, Other)
  Sender: FDA-Public Use
  Company Number: GB-NOVOPROD-371079

PATIENT
  Age: 65 Year
  Sex: Male
  Weight: 89 kg

DRUGS (3)
  1. VICTOZA [Suspect]
     Indication: DIABETES MELLITUS
     Dosage: 1.2 MG, QD
     Route: 058
     Dates: start: 20120820, end: 20130214
  2. NOVORAPID [Concomitant]
     Indication: DIABETES MELLITUS
  3. LEVEMIR [Concomitant]
     Indication: DIABETES MELLITUS

REACTIONS (2)
  - Pancreatitis [Recovered/Resolved]
  - Cholelithiasis [Unknown]
